FAERS Safety Report 18325553 (Version 1)
Quarter: 2020Q3

REPORT INFORMATION
  Report Type: Spontaneous
  Country: US (occurrence: US)
  Receive Date: 20200929
  Receipt Date: 20200929
  Transmission Date: 20201103
  Serious: No
  Sender: FDA-Public Use
  Company Number: US-PFIZER INC-2020368311

PATIENT
  Age: 51 Year
  Sex: Male
  Weight: 79.38 kg

DRUGS (1)
  1. ATORVASTATIN CALCIUM. [Suspect]
     Active Substance: ATORVASTATIN CALCIUM
     Indication: CARDIAC FAILURE
     Dosage: 80 MG, 1X/DAY(80MG TABLET TAKEN WHOLE BY MOUTH ONCE NIGHTLY)
     Route: 048
     Dates: start: 202004

REACTIONS (2)
  - Pruritus [Not Recovered/Not Resolved]
  - Urticaria [Not Recovered/Not Resolved]

NARRATIVE: CASE EVENT DATE: 202004
